FAERS Safety Report 8470670-X (Version None)
Quarter: 2012Q2

REPORT INFORMATION
  Report Type: 
  Country: None (occurrence: None)
  Receive Date: 20120627
  Receipt Date: 20120625
  Transmission Date: 20120825
  Serious: Yes (Other)
  Sender: FDA-Public Use
  Company Number: PHHY2012NL044503

PATIENT
  Sex: Male

DRUGS (2)
  1. ZOMETA [Suspect]
     Indication: PROSTATE CANCER METASTATIC
     Dosage: 4MG/100ML SOLUTION FOR IV INFUSION ONCE PER 28 DAYS
     Dates: start: 20111011
  2. ZOMETA [Suspect]
     Dosage: 4MG/100ML SOLUTION FOR IV INFUSION ONCE PER 28 DAYS
     Dates: start: 20120424

REACTIONS (2)
  - OSTEOMYELITIS [None]
  - PAIN IN JAW [None]
